FAERS Safety Report 4594818-2 (Version None)
Quarter: 2005Q1

REPORT INFORMATION
  Report Type: 
  Country: None (occurrence: None)
  Receive Date: 20050223
  Receipt Date: 20050210
  Transmission Date: 20050727
  Serious: Yes (Life-Threatening)
  Sender: FDA-Public Use
  Company Number: 2005RR-00455

PATIENT
  Age: 36 Year
  Sex: Male
  Weight: 65 kg

DRUGS (2)
  1. FLUOXETINE [Suspect]
     Dosage: 20 MG, ORAL
     Route: 048
     Dates: start: 20040929, end: 20041201
  2. NICORETTE INHALER [Concomitant]

REACTIONS (3)
  - ABNORMAL BEHAVIOUR [None]
  - INJURY [None]
  - PHYSICAL ASSAULT [None]
